FAERS Safety Report 18098433 (Version 6)
Quarter: 2020Q3

REPORT INFORMATION
  Report Type: Spontaneous
  Country: US (occurrence: US)
  Receive Date: 20200731
  Receipt Date: 20200929
  Transmission Date: 20201103
  Serious: No
  Sender: FDA-Public Use
  Company Number: US-PFIZER INC-2020290369

PATIENT
  Age: 78 Year
  Sex: Male

DRUGS (4)
  1. TIKOSYN [Suspect]
     Active Substance: DOFETILIDE
     Dosage: UNK, 1X/DAY (TIKOSYN IN THE MORNING/DOFETILIDE MADE BY A DIFFERENT MANUFACTURER IN THE EVENING)
  2. TIKOSYN [Suspect]
     Active Substance: DOFETILIDE
     Indication: ATRIAL FIBRILLATION
     Dosage: 500 UG, 2X/DAY
     Route: 048
  3. DOFETILIDE. [Suspect]
     Active Substance: DOFETILIDE
     Indication: ATRIAL FIBRILLATION
     Dosage: 500 UG, 2X/DAY (500MCG ORAL TWICE A DAY)
     Route: 048
  4. DOFETILIDE. [Suspect]
     Active Substance: DOFETILIDE
     Dosage: UNK, 1X/DAY (TIKOSYN IN THE MORNING/DOFETILIDE MADE BY A DIFFERENT MANUFACTURER IN THE EVENING)

REACTIONS (1)
  - Therapeutic product effect incomplete [Unknown]
